FAERS Safety Report 17152323 (Version 1)
Quarter: 2019Q4

REPORT INFORMATION
  Report Type: Report from Study
  Country: IN (occurrence: IN)
  Receive Date: 20191213
  Receipt Date: 20191213
  Transmission Date: 20200122
  Serious: Yes (Other)
  Sender: FDA-Public Use
  Company Number: PHHY2019IN047274

PATIENT
  Age: 50 Year
  Sex: Female
  Weight: 73 kg

DRUGS (4)
  1. THYROXINE [Concomitant]
     Active Substance: LEVOTHYROXINE
     Indication: PRODUCT USED FOR UNKNOWN INDICATION
     Dosage: 1 DF, QD
     Route: 065
  2. SAMION OD [Concomitant]
     Indication: PRODUCT USED FOR UNKNOWN INDICATION
     Dosage: 1 DF, QD
     Route: 065
  3. GALVUS MET [Suspect]
     Active Substance: METFORMIN HYDROCHLORIDE\VILDAGLIPTIN
     Indication: PRODUCT USED FOR UNKNOWN INDICATION
     Dosage: 1 DF (METFORMIN 500MG, VILDAGLIPTIN 50MG), BID
     Route: 048
  4. GALVUS MET [Suspect]
     Active Substance: METFORMIN HYDROCHLORIDE\VILDAGLIPTIN
     Dosage: 1 DF, QD (0-1-0)
     Route: 048

REACTIONS (9)
  - Peripheral swelling [Recovered/Resolved]
  - Hypertension [Recovered/Resolved]
  - Arthropathy [Recovered/Resolved]
  - Arthralgia [Recovered/Resolved]
  - Hyperglycaemia [Recovered/Resolved]
  - Swelling face [Recovered/Resolved]
  - Hypersensitivity [Unknown]
  - Blood pressure increased [Unknown]
  - Toothache [Recovered/Resolved]

NARRATIVE: CASE EVENT DATE: 20190221
